FAERS Safety Report 9869187 (Version 1)
Quarter: 2014Q1

REPORT INFORMATION
  Report Type: Spontaneous
  Country: CA (occurrence: CA)
  Receive Date: 20140205
  Receipt Date: 20140205
  Transmission Date: 20141002
  Serious: Yes (Hospitalization)
  Sender: FDA-Public Use
  Company Number: CA-JNJFOC-20140116423

PATIENT
  Age: 96 Year
  Sex: Female
  Weight: 56.25 kg

DRUGS (10)
  1. TYLENOL ANALGESIC UNKNOWN [Suspect]
     Indication: BACK PAIN
     Dosage: 1 PILL
     Route: 048
  2. TYLENOL EXTRA STRENGTH [Suspect]
     Route: 048
  3. TYLENOL EXTRA STRENGTH [Suspect]
     Indication: BACK PAIN
     Route: 048
  4. TYLENOL ARTHRITIS PAIN [Suspect]
     Route: 048
  5. TYLENOL ARTHRITIS PAIN [Suspect]
     Indication: BACK PAIN
     Route: 048
  6. TYLENOL REGULAR STRENGTH [Suspect]
     Route: 048
  7. TYLENOL REGULAR STRENGTH [Suspect]
     Indication: BACK PAIN
     Route: 048
  8. TYLENOL EXTRA STRENGTH EZTAB [Suspect]
     Route: 065
  9. TYLENOL EXTRA STRENGTH EZTAB [Suspect]
     Indication: BACK PAIN
     Route: 065
  10. MORPHINE [Concomitant]
     Indication: BACK PAIN
     Dosage: FOR TWO YEARS
     Route: 048

REACTIONS (5)
  - Vomiting [Not Recovered/Not Resolved]
  - Weight decreased [Not Recovered/Not Resolved]
  - Eating disorder [Not Recovered/Not Resolved]
  - Foreign body [Not Recovered/Not Resolved]
  - Dehydration [Not Recovered/Not Resolved]
